FAERS Safety Report 12882759 (Version 2)
Quarter: 2016Q4

REPORT INFORMATION
  Report Type: Spontaneous
  Country: DE (occurrence: DE)
  Receive Date: 20161025
  Receipt Date: 20161118
  Transmission Date: 20170207
  Serious: Yes (Other)
  Sender: FDA-Public Use
  Company Number: DE-TEVA-703011GER

PATIENT
  Sex: Male

DRUGS (1)
  1. TAMSULOSIN-CT 0,4 MG HARTKAPSELN [Suspect]
     Active Substance: TAMSULOSIN
     Indication: DYSURIA
     Route: 048

REACTIONS (3)
  - Drug dependence [Unknown]
  - Drug ineffective [Unknown]
  - Dysuria [Recovered/Resolved]
